FAERS Safety Report 7371007-X (Version None)
Quarter: 2011Q1

REPORT INFORMATION
  Report Type: 
  Country: None (occurrence: None)
  Receive Date: 20110321
  Receipt Date: 20110321
  Transmission Date: 20110831
  Serious: Yes (Hospitalization, Other)
  Sender: FDA-Public Use
  Company Number: None

PATIENT
  Age: 65 Year
  Sex: Male
  Weight: 78.9259 kg

DRUGS (1)
  1. NIACIN [Suspect]
     Indication: HIGH DENSITY LIPOPROTEIN INCREASED
     Dates: start: 20090201, end: 20110318

REACTIONS (9)
  - COLD SWEAT [None]
  - CARDIOVASCULAR DISORDER [None]
  - RASH GENERALISED [None]
  - FLUSHING [None]
  - RESPIRATORY RATE INCREASED [None]
  - NAUSEA [None]
  - MUSCULAR WEAKNESS [None]
  - LOSS OF CONSCIOUSNESS [None]
  - DIZZINESS [None]
